FAERS Safety Report 14911904 (Version 2)
Quarter: 2018Q2

REPORT INFORMATION
  Report Type: Report from Study
  Country: DE (occurrence: DE)
  Receive Date: 20180518
  Receipt Date: 20180628
  Transmission Date: 20180711
  Serious: Yes (Hospitalization, Other)
  Sender: FDA-Public Use
  Company Number: DE-AMGEN-DEUCT2018065588

PATIENT
  Age: 49 Year
  Sex: Female
  Weight: 62 kg

DRUGS (6)
  1. EPIRUBICIN [Suspect]
     Active Substance: EPIRUBICIN
     Indication: BREAST CANCER
     Dosage: 145 MG, Q2WK
     Route: 042
     Dates: start: 20180314
  2. DENOSUMAB [Suspect]
     Active Substance: DENOSUMAB
     Indication: BREAST CANCER
     Dosage: 1 MG, Q4WK
     Route: 058
     Dates: start: 20171220
  3. CYCLOPHOSPHAMIDE. [Suspect]
     Active Substance: CYCLOPHOSPHAMIDE
     Indication: BREAST CANCER
     Dosage: 145 MG, Q2WK
     Route: 042
     Dates: start: 20180314
  4. PACLITAXEL. [Suspect]
     Active Substance: PACLITAXEL
     Indication: BREAST CANCER
     Dosage: 201 MG, D1, 8 Q22
     Route: 042
     Dates: start: 20171220
  5. CANDESARTAN. [Concomitant]
     Active Substance: CANDESARTAN
     Dosage: 25 MG, UNK
     Dates: start: 201607
  6. UNACID [Concomitant]

REACTIONS (1)
  - Pneumocystis jirovecii pneumonia [Recovered/Resolved]

NARRATIVE: CASE EVENT DATE: 20180511
